FAERS Safety Report 19765912 (Version 1)
Quarter: 2021Q3

REPORT INFORMATION
  Report Type: Spontaneous
  Country: DE (occurrence: DE)
  Receive Date: 20210830
  Receipt Date: 20210830
  Transmission Date: 20211014
  Serious: Yes (Life-Threatening)
  Sender: FDA-Public Use
  Company Number: DE-ROCHE-2897897

PATIENT
  Age: 57 Year
  Sex: Male
  Weight: 82 kg

DRUGS (2)
  1. ACTILYSE [Suspect]
     Active Substance: ALTEPLASE
     Indication: PULMONARY EMBOLISM
     Dosage: 10MG: 11.25 P.M. 2 MINUTES?80MG: 11.30 P.M. 1 HOUR
     Route: 042
     Dates: start: 20210818
  2. ACTILYSE [Suspect]
     Active Substance: ALTEPLASE
     Dosage: 10MG: 11.25 P.M. 2 MINUTES?80MG: 11.30 P.M. 1 HOUR
     Route: 042
     Dates: start: 20210818

REACTIONS (8)
  - Hyperhidrosis [Recovered/Resolved]
  - Delirium [Recovered/Resolved]
  - Feeling hot [Recovered/Resolved]
  - Dyspnoea [Recovered/Resolved]
  - Sense of oppression [Recovered/Resolved]
  - Anxiety [Recovered/Resolved]
  - Drug intolerance [Recovered/Resolved]
  - Restlessness [Recovered/Resolved]

NARRATIVE: CASE EVENT DATE: 20210819
